FAERS Safety Report 14950162 (Version 1)
Quarter: 2018Q2

REPORT INFORMATION
  Report Type: Report from Study
  Country: CA (occurrence: CA)
  Receive Date: 20180530
  Receipt Date: 20180530
  Transmission Date: 20180711
  Serious: Yes (Other)
  Sender: FDA-Public Use
  Company Number: CA-ROCHE-1736014

PATIENT
  Sex: Male

DRUGS (22)
  1. RITUXAN [Suspect]
     Active Substance: RITUXIMAB
     Indication: SCLERODERMA
     Route: 042
     Dates: start: 20160331
  2. OXYGEN. [Concomitant]
     Active Substance: OXYGEN
  3. NITROGLYCERIN PATCH AND TABS [Concomitant]
  4. ROSUVASTATIN. [Concomitant]
     Active Substance: ROSUVASTATIN
  5. PANTOPRAZOLE [Concomitant]
     Active Substance: PANTOPRAZOLE
  6. RITUXAN [Suspect]
     Active Substance: RITUXIMAB
     Route: 042
     Dates: start: 20160405
  7. RABEPRAZOLE [Concomitant]
     Active Substance: RABEPRAZOLE
  8. SEPTRA [Concomitant]
     Active Substance: SULFAMETHOXAZOLE\TRIMETHOPRIM
  9. ASPIRIN. [Concomitant]
     Active Substance: ASPIRIN
  10. PLAVIX [Concomitant]
     Active Substance: CLOPIDOGREL BISULFATE
  11. AXIRON [Concomitant]
     Active Substance: TESTOSTERONE
  12. MOMETASONE [Concomitant]
     Active Substance: MOMETASONE
  13. IPRATROPIUM [Concomitant]
     Active Substance: IPRATROPIUM
  14. SULFATRIM [Concomitant]
     Active Substance: SULFAMETHOXAZOLE\TRIMETHOPRIM
  15. SYNTHROID [Concomitant]
     Active Substance: LEVOTHYROXINE SODIUM
  16. NITROGLYCERINE SPRAY UNSPEC. [Concomitant]
  17. RITUXAN [Suspect]
     Active Substance: RITUXIMAB
     Indication: INTERSTITIAL LUNG DISEASE
     Route: 042
     Dates: start: 201508
  18. MYCOPHENOLATE MOFETIL. [Concomitant]
     Active Substance: MYCOPHENOLATE MOFETIL
     Route: 065
  19. MORPHINE [Concomitant]
     Active Substance: MORPHINE
     Route: 065
  20. PREDNISONE. [Concomitant]
     Active Substance: PREDNISONE
  21. SALMON OIL [Concomitant]
     Active Substance: FISH OIL
  22. ALENDRONATE [Concomitant]
     Active Substance: ALENDRONATE SODIUM

REACTIONS (6)
  - Dyspnoea [Unknown]
  - Cough [Unknown]
  - White blood cell count increased [Unknown]
  - Ear infection [Unknown]
  - Weight decreased [Unknown]
  - Deafness [Unknown]
